FAERS Safety Report 14770807 (Version 1)
Quarter: 2018Q2

REPORT INFORMATION
  Report Type: Spontaneous
  Country: US (occurrence: US)
  Receive Date: 20180417
  Receipt Date: 20180417
  Transmission Date: 20180711
  Serious: No
  Sender: FDA-Public Use
  Company Number: US-ABBVIE-17P-163-2128576-00

PATIENT
  Age: 6 Year
  Sex: Female

DRUGS (2)
  1. CANNABIS OIL [Suspect]
     Active Substance: CANNABIS SATIVA SEED OIL
     Indication: APPETITE DISORDER
     Route: 065
  2. LUPRON [Suspect]
     Active Substance: LEUPROLIDE ACETATE
     Indication: PRECOCIOUS PUBERTY
     Route: 030
     Dates: start: 2017

REACTIONS (1)
  - Somnolence [Unknown]
